FAERS Safety Report 7772338-1 (Version None)
Quarter: 2011Q3

REPORT INFORMATION
  Report Type: 
  Country: None (occurrence: None)
  Receive Date: 20110922
  Receipt Date: 20110720
  Transmission Date: 20111222
  Serious: Yes (Hospitalization)
  Sender: FDA-Public Use
  Company Number: US-ASTRAZENECA-2011SE43678

PATIENT
  Age: 374 Month
  Sex: Male

DRUGS (9)
  1. VALIUM [Concomitant]
     Dates: start: 20090921
  2. DEXTROAMPHETAMINE [Concomitant]
     Dosage: 5 MG, TAKE 1-2 TABLET DAILY
     Dates: start: 20060120
  3. CHLORPROMAZINE [Concomitant]
     Dosage: 100 MG. TAKE 2 TABLETS
     Dates: start: 20050822
  4. FOCALIN SR [Concomitant]
     Dates: start: 20090921
  5. D AMPHETAEMINE ER [Concomitant]
     Dosage: 15 MG, TAKE 1 CAPSULE
     Dates: start: 20050909
  6. PROZAC [Concomitant]
     Dates: start: 20081127
  7. SEROQUEL [Suspect]
     Dosage: 100-300 MG
     Route: 048
     Dates: start: 20051021
  8. DEXEDRINE [Concomitant]
     Dosage: 15, TAKE 2 CAPSULE DAILY
     Dates: start: 20060126
  9. LORAZEPAM [Concomitant]
     Dosage: 0.5 MG, 1-2 TABLET
     Dates: start: 20060104

REACTIONS (12)
  - DIABETES MELLITUS [None]
  - CONTUSION [None]
  - PSYCHOMOTOR HYPERACTIVITY [None]
  - SUICIDE ATTEMPT [None]
  - ARRHYTHMIA [None]
  - PLATELET COUNT DECREASED [None]
  - EPISTAXIS [None]
  - THROMBOCYTOPENIA [None]
  - OEDEMA PERIPHERAL [None]
  - IDIOPATHIC THROMBOCYTOPENIC PURPURA [None]
  - TREATMENT NONCOMPLIANCE [None]
  - ATTENTION DEFICIT/HYPERACTIVITY DISORDER [None]
